FAERS Safety Report 10461025 (Version 1)
Quarter: 2014Q3

REPORT INFORMATION
  Report Type: Spontaneous
  Country: US (occurrence: None)
  Receive Date: 20140917
  Receipt Date: 20140917
  Transmission Date: 20150326
  Serious: Yes (Hospitalization)
  Sender: FDA-Public Use
  Company Number: None

PATIENT
  Age: 71 Year
  Sex: Female
  Weight: 63.5 kg

DRUGS (1)
  1. ALENDRONATE [Suspect]
     Active Substance: ALENDRONATE SODIUM
     Indication: OSTEOPOROSIS
     Dates: start: 20140914

REACTIONS (9)
  - Bone pain [None]
  - Pain [None]
  - Arthralgia [None]
  - Faecal volume increased [None]
  - Dehydration [None]
  - Spinal pain [None]
  - Nausea [None]
  - Sinus congestion [None]
  - Headache [None]

NARRATIVE: CASE EVENT DATE: 20140914
